FAERS Safety Report 8489492-9 (Version None)
Quarter: 2012Q3

REPORT INFORMATION
  Report Type: 
  Country: None (occurrence: None)
  Receive Date: 20120705
  Receipt Date: 20120628
  Transmission Date: 20120928
  Serious: Yes (Hospitalization)
  Sender: FDA-Public Use
  Company Number: AU-JNJFOC-20120613096

PATIENT
  Sex: Male
  Weight: 67 kg

DRUGS (9)
  1. ELIGARD [Concomitant]
     Indication: HORMONE THERAPY
     Route: 065
     Dates: start: 20100101
  2. PREDNISOLONE [Suspect]
     Indication: PROSTATE CANCER METASTATIC
     Route: 048
     Dates: start: 20120211
  3. OXYCODONE HCL [Concomitant]
     Indication: BONE PAIN
     Route: 065
     Dates: start: 20120101
  4. MAXOLON [Concomitant]
     Indication: NAUSEA
     Route: 065
     Dates: start: 20110101
  5. ACIMAX [Concomitant]
     Indication: GASTROOESOPHAGEAL REFLUX DISEASE
     Route: 065
     Dates: start: 19970101
  6. OXYCODONE HCL [Concomitant]
     Route: 065
     Dates: start: 20120419
  7. ZYTIGA [Suspect]
     Route: 048
  8. LIPIDIL [Concomitant]
     Indication: HYPERCHOLESTEROLAEMIA
     Route: 065
     Dates: start: 20020101
  9. ZYTIGA [Suspect]
     Indication: PROSTATE CANCER METASTATIC
     Route: 048
     Dates: start: 20120211, end: 20120614

REACTIONS (1)
  - PAIN [None]
